FAERS Safety Report 8733717 (Version 3)
Quarter: 2013Q2

REPORT INFORMATION
  Report Type: Spontaneous
  Country: US (occurrence: None)
  Receive Date: 20120803
  Receipt Date: 20120924
  Transmission Date: 20140414
  Serious: Yes (Hospitalization, Other)
  Sender: FDA-Public Use
  Company Number: ADR-2012-01074

PATIENT
  Sex: Female

DRUGS (2)
  1. LIORESAL [Suspect]
     Indication: MUSCLE SPASTICITY
  2. LIORESAL [Suspect]
     Indication: MULTIPLE SCLEROSIS

REACTIONS (8)
  - Underdose [None]
  - Withdrawal syndrome [None]
  - Tachycardia [None]
  - Hallucination [None]
  - Vibratory sense increased [None]
  - White blood cell count increased [None]
  - Depressed level of consciousness [None]
  - Blood creatine phosphokinase increased [None]
